FAERS Safety Report 24541091 (Version 5)
Quarter: 2024Q4

REPORT INFORMATION
  Report Type: Spontaneous
  Country: US (occurrence: US)
  Receive Date: 20241023
  Receipt Date: 20241227
  Transmission Date: 20250114
  Serious: No
  Sender: PFIZER
  Company Number: US-PFIZER INC-202400268938

PATIENT
  Age: 26 Year
  Sex: Male
  Weight: 60.4 kg

DRUGS (3)
  1. ADCETRIS [Suspect]
     Active Substance: BRENTUXIMAB VEDOTIN
     Dosage: 73.7 MG, CYCLIC (INFUSION, EVERY 2 WEEKS)
  2. ADCETRIS [Suspect]
     Active Substance: BRENTUXIMAB VEDOTIN
     Dosage: 75MG IV EVERY 3 WEEKS
     Route: 042
  3. ADCETRIS [Suspect]
     Active Substance: BRENTUXIMAB VEDOTIN
     Dosage: 75MG IV (INTRAVENOUS) Q2W (EVERY 2 WEEKS)
     Route: 042
     Dates: start: 202410

REACTIONS (2)
  - Weight fluctuation [Recovering/Resolving]
  - Off label use [Unknown]
